FAERS Safety Report 4430927-6 (Version None)
Quarter: 2004Q3

REPORT INFORMATION
  Report Type: 
  Country: None (occurrence: None)
  Receive Date: 20040823
  Receipt Date: 20040816
  Transmission Date: 20050211
  Serious: Yes (Disabling)
  Sender: FDA-Public Use
  Company Number: GB-MERCK-0408GBR00145

PATIENT
  Age: 90 Year
  Sex: Female

DRUGS (5)
  1. ASPIRIN [Concomitant]
     Route: 048
     Dates: start: 20040101
  2. ATENOLOL [Concomitant]
     Route: 048
     Dates: start: 20040101
  3. DIGOXIN [Concomitant]
     Route: 048
     Dates: start: 20040101
  4. FUROSEMIDE [Concomitant]
     Route: 048
     Dates: start: 20031201, end: 20040601
  5. VIOXX [Suspect]
     Indication: PAIN
     Route: 048
     Dates: start: 20040621, end: 20040701

REACTIONS (1)
  - DEMENTIA [None]
